FAERS Safety Report 11526013 (Version 3)
Quarter: 2016Q1

REPORT INFORMATION
  Report Type: Spontaneous
  Country: IN (occurrence: IN)
  Receive Date: 20150918
  Receipt Date: 20160211
  Transmission Date: 20160525
  Serious: Yes (Hospitalization)
  Sender: FDA-Public Use
  Company Number: IN-ALLERGAN-1519068US

PATIENT
  Age: 61 Year
  Sex: Male

DRUGS (1)
  1. BOTOX [Suspect]
     Active Substance: ONABOTULINUMTOXINA
     Indication: DYSTONIA
     Dosage: 300 UNITS, SINGLE
     Route: 030
     Dates: start: 20150811, end: 20150811

REACTIONS (3)
  - Muscle spasticity [Unknown]
  - Pain [Unknown]
  - Drug ineffective [Unknown]
